FAERS Safety Report 11991856 (Version 1)
Quarter: 2016Q1

REPORT INFORMATION
  Report Type: Spontaneous
  Country: US (occurrence: US)
  Receive Date: 20160203
  Receipt Date: 20160203
  Transmission Date: 20160526
  Serious: No
  Sender: FDA-Public Use
  Company Number: US-JNJFOC-20151209225

PATIENT
  Age: 77 Year
  Sex: Male
  Weight: 86.18 kg

DRUGS (2)
  1. ZYRTEC 10MG IR TABLET [Suspect]
     Active Substance: CETIRIZINE HYDROCHLORIDE
     Indication: ALLERGIC RESPIRATORY DISEASE
     Dosage: 1 TAB QD PRN.
     Route: 048
     Dates: start: 2015
  2. ZYRTEC 10MG IR TABLET [Suspect]
     Active Substance: CETIRIZINE HYDROCHLORIDE
     Route: 048

REACTIONS (1)
  - Expired product administered [Unknown]
